FAERS Safety Report 19084530 (Version 1)
Quarter: 2021Q2

REPORT INFORMATION
  Report Type: Spontaneous
  Country: US (occurrence: US)
  Receive Date: 20210401
  Receipt Date: 20210401
  Transmission Date: 20210717
  Serious: No
  Sender: FDA-Public Use
  Company Number: US-IBSA PHARMA-2020-IBS-00759

PATIENT

DRUGS (15)
  1. DICLOFENAC EPOLAMINE [Suspect]
     Active Substance: DICLOFENAC EPOLAMINE
  2. ACETAMINOPHEN. [Suspect]
     Active Substance: ACETAMINOPHEN
  3. DULOXETINE. [Suspect]
     Active Substance: DULOXETINE
  4. COMPAZINE [Suspect]
     Active Substance: PROCHLORPERAZINE MALEATE
  5. NEXIUM [Concomitant]
     Active Substance: ESOMEPRAZOLE MAGNESIUM
  6. ONDANSETRON [Suspect]
     Active Substance: ONDANSETRON
  7. NEURONTIN [Concomitant]
     Active Substance: GABAPENTIN
  8. ACETYLCYSTEINE. [Suspect]
     Active Substance: ACETYLCYSTEINE
  9. DIAZEPAM. [Suspect]
     Active Substance: DIAZEPAM
  10. FLEXERIL [CEFIXIME] [Concomitant]
     Active Substance: CEFIXIME
  11. TUMS DUAL ACTION [CALCIUM CARBONATE;FAMOTIDINE;MAGNESIUM HYDROXIDE] [Concomitant]
  12. NORCO [Suspect]
     Active Substance: ACETAMINOPHEN\HYDROCODONE BITARTRATE
  13. CORTISONE [Suspect]
     Active Substance: CORTISONE
  14. VOLTAREN [Concomitant]
     Active Substance: DICLOFENAC SODIUM
  15. VITAMIN D3 [Concomitant]
     Active Substance: CHOLECALCIFEROL

REACTIONS (1)
  - Drug hypersensitivity [Unknown]
